FAERS Safety Report 15826387 (Version 1)
Quarter: 2019Q1

REPORT INFORMATION
  Report Type: Spontaneous
  Country: GB (occurrence: GB)
  Receive Date: 20190115
  Receipt Date: 20190115
  Transmission Date: 20190417
  Serious: Yes (Other)
  Sender: FDA-Public Use
  Company Number: PHHY2018GB166353

PATIENT
  Sex: Female

DRUGS (3)
  1. METFORMIN [Suspect]
     Active Substance: METFORMIN HYDROCHLORIDE
     Indication: PRODUCT USED FOR UNKNOWN INDICATION
     Route: 065
  2. PROPRANOLOL [Suspect]
     Active Substance: PROPRANOLOL HYDROCHLORIDE
     Indication: HYPERTENSION
     Dosage: 20 MG, QD (NOCTE)
     Route: 065
  3. PROPRANOLOL [Suspect]
     Active Substance: PROPRANOLOL HYDROCHLORIDE
     Indication: VESTIBULAR MIGRAINE
     Dosage: 40 MG, QD (NOCTE)
     Route: 065

REACTIONS (12)
  - Bradycardia [Unknown]
  - Pulse abnormal [Unknown]
  - Blood glucose increased [Unknown]
  - Hypoglycaemia unawareness [Unknown]
  - Exercise tolerance decreased [Unknown]
  - Peripheral swelling [Unknown]
  - Change of bowel habit [Unknown]
  - Sluggishness [Unknown]
  - Swelling face [Unknown]
  - Vitamin B12 decreased [Unknown]
  - Nausea [Unknown]
  - Poor quality sleep [Unknown]

NARRATIVE: CASE EVENT DATE: 20180813
